FAERS Safety Report 8507301-6 (Version None)
Quarter: 2012Q3

REPORT INFORMATION
  Report Type: 
  Country: None (occurrence: None)
  Receive Date: 20120712
  Receipt Date: 20120709
  Transmission Date: 20120928
  Serious: Yes (Hospitalization)
  Sender: FDA-Public Use
  Company Number: SG-ROCHE-1085941

PATIENT
  Age: 44 Year
  Sex: Male
  Weight: 76.3 kg

DRUGS (9)
  1. MAGNESIUM CARBONATE [Concomitant]
     Indication: ABDOMINAL DISTENSION
     Dates: start: 20120307
  2. MABTHERA [Suspect]
     Indication: NON-HODGKIN'S LYMPHOMA
     Route: 042
     Dates: start: 20111102
  3. INOTUZUMAB OZOGAMICIN [Suspect]
     Indication: NON-HODGKIN'S LYMPHOMA
     Route: 042
     Dates: start: 20111103
  4. PREDNISONE TAB [Suspect]
     Indication: NON-HODGKIN'S LYMPHOMA
     Route: 048
     Dates: start: 20111102
  5. CYCLOPHOSPHAMIDE [Suspect]
     Indication: NON-HODGKIN'S LYMPHOMA
     Route: 042
     Dates: start: 20111102
  6. VINCRISTINE [Suspect]
     Indication: NON-HODGKIN'S LYMPHOMA
     Route: 042
     Dates: start: 20110102
  7. HYOSCINE BUTYLBROMIDE [Concomitant]
     Indication: ABDOMINAL DISCOMFORT
     Dates: start: 20120307
  8. FAMOTIDINE [Concomitant]
     Dates: start: 20120307
  9. CIPROFLOXACIN HCL [Concomitant]
     Indication: INFECTION
     Dates: start: 20120308, end: 20120314

REACTIONS (1)
  - ILEITIS [None]
